FAERS Safety Report 9441799 (Version 3)
Quarter: 2013Q4

REPORT INFORMATION
  Report Type: Spontaneous
  Country: US (occurrence: US)
  Receive Date: 20130806
  Receipt Date: 20131001
  Transmission Date: 20140711
  Serious: Yes (Death, Hospitalization)
  Sender: FDA-Public Use
  Company Number: US-PFIZER INC-2013226647

PATIENT
  Age: 65 Year
  Sex: Female
  Weight: 54.4 kg

DRUGS (4)
  1. XALKORI [Suspect]
     Indication: NON-SMALL CELL LUNG CANCER
     Dosage: 250 MG, TWO TIMES A DAY (ONE IN MORNING AND ONE AT NIGHT)
     Route: 048
     Dates: start: 20130614
  2. XALKORI [Interacting]
     Dosage: UNK
  3. FENTANYL [Interacting]
     Indication: BACK PAIN
     Dosage: 100 UG, 1X/DAY
     Dates: start: 20130601
  4. COMPAZINE [Interacting]
     Indication: NAUSEA
     Dosage: 10 MG, 3X/DAY
     Route: 048

REACTIONS (10)
  - Disease progression [Fatal]
  - Non-small cell lung cancer [Fatal]
  - Oedema peripheral [Fatal]
  - Renal impairment [Fatal]
  - Cardiac failure congestive [Fatal]
  - Cystitis escherichia [Unknown]
  - Pneumonia [Unknown]
  - Drug interaction [Unknown]
  - Asthenia [Not Recovered/Not Resolved]
  - Somnolence [Not Recovered/Not Resolved]
